FAERS Safety Report 6940523-4 (Version None)
Quarter: 2010Q3

REPORT INFORMATION
  Report Type: 
  Country: None (occurrence: None)
  Receive Date: 20100825
  Receipt Date: 20100820
  Transmission Date: 20110219
  Serious: Yes (Death)
  Sender: FDA-Public Use
  Company Number: US-GILEAD-2010-0031220

PATIENT
  Sex: Female

DRUGS (14)
  1. LETAIRIS [Suspect]
     Indication: PULMONARY ARTERIAL HYPERTENSION
     Route: 048
     Dates: start: 20100707
  2. LASIX [Concomitant]
  3. BENAZEPRIL HYDROCHLORIDE [Concomitant]
  4. SULAR [Concomitant]
  5. IPRATROPIUM BROMIDE [Concomitant]
  6. ACTOS [Concomitant]
  7. LUMIGAN [Concomitant]
  8. FEMARA [Concomitant]
  9. LUTEIN [Concomitant]
  10. MULTI-VITAMIN [Concomitant]
  11. VITAMIN D [Concomitant]
  12. KLOR-CON [Concomitant]
  13. VITAMIN E [Concomitant]
  14. ASCORBIC ACID [Concomitant]

REACTIONS (1)
  - DEATH [None]
